FAERS Safety Report 9778471 (Version 1)
Quarter: 2013Q4

REPORT INFORMATION
  Report Type: Spontaneous
  Country: FR (occurrence: FR)
  Receive Date: 20131223
  Receipt Date: 20131223
  Transmission Date: 20140711
  Serious: Yes (Life-Threatening, Hospitalization, Other)
  Sender: FDA-Public Use
  Company Number: FR-ASTELLAS-2013EU011325

PATIENT
  Age: 70 Year
  Sex: Male

DRUGS (2)
  1. ADVAGRAF [Suspect]
     Indication: LIVER TRANSPLANT
     Dosage: 5 MG, UNKNOWN/D
     Route: 048
  2. CERTICAN [Concomitant]
     Indication: LIVER TRANSPLANT
     Dosage: UNK
     Route: 065

REACTIONS (3)
  - Intestinal infarction [Unknown]
  - Lung disorder [Unknown]
  - Transplant rejection [Unknown]
